FAERS Safety Report 8971006 (Version 1)
Quarter: 2012Q4

REPORT INFORMATION
  Report Type: 
  Country: US (occurrence: US)
  Receive Date: 20121218
  Receipt Date: 20121218
  Transmission Date: 20130627
  Serious: No
  Sender: FDA-Public Use
  Company Number: US-BRISTOL-MYERS SQUIBB COMPANY-17026667

PATIENT
  Age: 13 Year
  Sex: Female
  Weight: 49.89 kg

DRUGS (3)
  1. ABILIFY TABS 5 MG [Suspect]
     Indication: PSYCHOTIC DISORDER
  2. ABILIFY TABS 5 MG [Suspect]
     Indication: MAJOR DEPRESSION
  3. ZOLOFT [Concomitant]
     Indication: DEPRESSION

REACTIONS (2)
  - Somnolence [Unknown]
  - Drug administration error [Unknown]
